FAERS Safety Report 6095813-7 (Version None)
Quarter: 2009Q1

REPORT INFORMATION
  Report Type: 
  Country: None (occurrence: None)
  Receive Date: 20090227
  Receipt Date: 20080619
  Transmission Date: 20090719
  Serious: No
  Sender: FDA-Public Use
  Company Number: A0733893A

PATIENT
  Age: 28 Year
  Sex: Female

DRUGS (3)
  1. LAMICTAL [Suspect]
     Indication: DEPRESSION
     Dosage: 300MG PER DAY
     Route: 048
  2. LEXAPRO [Suspect]
  3. STRATTERA [Suspect]

REACTIONS (1)
  - RASH [None]
